FAERS Safety Report 8757868 (Version 2)
Quarter: 2012Q4

REPORT INFORMATION
  Report Type: 
  Country: US (occurrence: US)
  Receive Date: 20120828
  Receipt Date: 20121108
  Transmission Date: 20130627
  Serious: Yes (Life-Threatening, Other)
  Sender: FDA-Public Use
  Company Number: US-SHIRE-ALL1-2012-03968

PATIENT
  Age: 16 Year
  Sex: Male
  Weight: 66.21 kg

DRUGS (2)
  1. ADDERALL XR [Suspect]
     Indication: ATTENTION DEFICIT/HYPERACTIVITY DISORDER
     Dosage: 20 mg, 1x/day:qd (in the morning)
     Route: 048
     Dates: start: 20080228, end: 2012
  2. ADDERALL XR [Suspect]
     Dosage: 10 mg, 1x/day:qd (in the afternoon)
     Route: 048
     Dates: start: 20080228, end: 2012

REACTIONS (4)
  - Cardiac arrest [Recovered/Resolved]
  - Brugada syndrome [Unknown]
  - Drug prescribing error [Recovered/Resolved]
  - Off label use [Recovered/Resolved]
